FAERS Safety Report 14201166 (Version 2)
Quarter: 2017Q4

REPORT INFORMATION
  Report Type: Spontaneous
  Country: US (occurrence: US)
  Receive Date: 20171117
  Receipt Date: 20171208
  Transmission Date: 20180321
  Serious: No
  Sender: FDA-Public Use
  Company Number: US-PFIZER INC-2017495400

PATIENT
  Age: 54 Year
  Sex: Female
  Weight: 124.72 kg

DRUGS (5)
  1. CODEINE SULFATE. [Suspect]
     Active Substance: CODEINE SULFATE
     Dosage: 30 MG, UNK
  2. IBUPROFEN. [Suspect]
     Active Substance: IBUPROFEN
     Dosage: 200 MG, UNK
  3. NAPROXEN. [Suspect]
     Active Substance: NAPROXEN
     Dosage: 250 MG, UNK
  4. ASPIRIN. [Suspect]
     Active Substance: ASPIRIN
     Dosage: 325 MG, UNK
  5. DOXYCYCLINE HYCLATE. [Suspect]
     Active Substance: DOXYCYCLINE HYCLATE
     Dosage: 100 MG, UNK

REACTIONS (1)
  - Drug hypersensitivity [Unknown]
